FAERS Safety Report 15046558 (Version 2)
Quarter: 2020Q1

REPORT INFORMATION
  Report Type: Report from Study
  Country: NO (occurrence: NO)
  Receive Date: 20180621
  Receipt Date: 20200330
  Transmission Date: 20200409
  Serious: Yes (Life-Threatening, Hospitalization, Other)
  Sender: FDA-Public Use
  Company Number: NO-PFIZER INC-2018251703

PATIENT
  Age: 74 Year
  Sex: Male
  Weight: 90 kg

DRUGS (3)
  1. SPIRONOLACTONE. [Suspect]
     Active Substance: SPIRONOLACTONE
  2. ENTRESTO [Suspect]
     Active Substance: SACUBITRIL\VALSARTAN
     Dosage: 100 MG, QD
     Route: 048
     Dates: start: 20180203, end: 20180219
  3. ENTRESTO [Suspect]
     Active Substance: SACUBITRIL\VALSARTAN
     Indication: CARDIAC FAILURE CHRONIC
     Dosage: 200 MG, 1X/DAY
     Route: 048
     Dates: start: 20171222, end: 20180203

REACTIONS (5)
  - Sepsis [Recovered/Resolved]
  - Hypotension [Recovered/Resolved]
  - Hyperkalaemia [Recovered/Resolved]
  - Respiratory failure [Recovered/Resolved]
  - Inappropriate schedule of product administration [Unknown]

NARRATIVE: CASE EVENT DATE: 20180131
